FAERS Safety Report 7087090-5 (Version None)
Quarter: 2010Q4

REPORT INFORMATION
  Report Type: 
  Country: None (occurrence: None)
  Receive Date: 20101106
  Receipt Date: 20101029
  Transmission Date: 20110411
  Serious: No
  Sender: FDA-Public Use
  Company Number: US-WYE-H18437510

PATIENT
  Sex: Male

DRUGS (3)
  1. PRISTIQ [Suspect]
     Dates: end: 20100101
  2. PRISTIQ [Suspect]
     Dates: start: 20100101, end: 20100101
  3. PRISTIQ [Suspect]
     Dates: start: 20100101

REACTIONS (2)
  - DIZZINESS [None]
  - DRUG WITHDRAWAL SYNDROME [None]
